FAERS Safety Report 12586236 (Version 1)
Quarter: 2016Q3

REPORT INFORMATION
  Report Type: Spontaneous
  Country: US (occurrence: None)
  Receive Date: 20160722
  Receipt Date: 20160722
  Transmission Date: 20161109
  Serious: Yes (Life-Threatening)
  Sender: FDA-Public Use
  Company Number: None

PATIENT
  Age: 55 Year
  Sex: Male
  Weight: 63.5 kg

DRUGS (5)
  1. TESTOSTERONE. [Concomitant]
     Active Substance: TESTOSTERONE
  2. TRUVADA [Concomitant]
     Active Substance: EMTRICITABINE\TENOFOVIR DISOPROXIL FUMARATE
  3. KEFIR [Concomitant]
  4. GILENYA [Suspect]
     Active Substance: FINGOLIMOD HYDROCHLORIDE
     Indication: MULTIPLE SCLEROSIS
     Dosage: IN THE MORNING TAKEN BY MOUTH
     Route: 048
     Dates: start: 20150201, end: 20150601
  5. CIALIS [Concomitant]
     Active Substance: TADALAFIL

REACTIONS (1)
  - Suicidal ideation [None]

NARRATIVE: CASE EVENT DATE: 20150501
